FAERS Safety Report 25643522 (Version 7)
Quarter: 2025Q4

REPORT INFORMATION
  Report Type: Spontaneous
  Country: CH (occurrence: CH)
  Receive Date: 20250805
  Receipt Date: 20251024
  Transmission Date: 20260118
  Serious: Yes (Hospitalization, Other)
  Sender: ROCHE
  Company Number: CH-002147023-NVSC2025CH104311

PATIENT
  Sex: Female

DRUGS (7)
  1. XOLAIR [Suspect]
     Active Substance: OMALIZUMAB
     Indication: Histamine intolerance
     Dosage: 150 MG
     Route: 065
     Dates: start: 20250514
  2. XARELTO [Concomitant]
     Active Substance: RIVAROXABAN
     Indication: Anticoagulant therapy
     Dosage: UNK
     Route: 065
  3. ISOPROPANOLAMINE [Concomitant]
     Active Substance: ISOPROPANOLAMINE
     Indication: Product used for unknown indication
     Dosage: 2.5 MG
     Route: 065
  4. LEVOTHYROXINE [Concomitant]
     Active Substance: LEVOTHYROXINE
     Indication: Thyroid disorder
     Dosage: UNK
     Route: 065
  5. LEVOTHYROXINE [Concomitant]
     Active Substance: LEVOTHYROXINE
     Indication: Autoimmune thyroiditis
  6. EBASTINE [Concomitant]
     Active Substance: EBASTINE
     Indication: Product used for unknown indication
     Dosage: UNK
     Route: 065
  7. Xylar [Concomitant]
     Indication: Product used for unknown indication
     Dosage: UNK
     Route: 065

REACTIONS (13)
  - Dyspnoea [Unknown]
  - Blood pressure increased [Unknown]
  - Chest discomfort [Unknown]
  - Arthralgia [Unknown]
  - Paraesthesia [Unknown]
  - Headache [Unknown]
  - Feeling hot [Unknown]
  - Drug intolerance [Unknown]
  - Heart rate increased [Recovering/Resolving]
  - Off label use [Unknown]
  - Atrial flutter [Recovered/Resolved]
  - Granulocytes abnormal [Unknown]
  - Chronic spontaneous urticaria [Unknown]

NARRATIVE: CASE EVENT DATE: 20250515
